FAERS Safety Report 21772388 (Version 3)
Quarter: 2023Q1

REPORT INFORMATION
  Report Type: Spontaneous
  Country: CO (occurrence: CO)
  Receive Date: 20221223
  Receipt Date: 20230207
  Transmission Date: 20230417
  Serious: Yes (Other)
  Sender: FDA-Public Use
  Company Number: CO-PFIZER INC-PV202200127077

PATIENT
  Age: 12 Year
  Sex: Male

DRUGS (2)
  1. GENOTROPIN [Suspect]
     Active Substance: SOMATROPIN
     Dosage: 1 MG, DAILY (EVERY NIGHT)
     Route: 058
     Dates: start: 2020, end: 2021
  2. GENOTROPIN [Suspect]
     Active Substance: SOMATROPIN
     Dosage: 1 MG, DAILY (EVERY NIGHT)
     Route: 058

REACTIONS (3)
  - Peritoneal dialysis [Recovered/Resolved]
  - Expired device used [Unknown]
  - Device failure [Unknown]

NARRATIVE: CASE EVENT DATE: 20210101
